FAERS Safety Report 5265122-4 (Version None)
Quarter: 2007Q1

REPORT INFORMATION
  Report Type: 
  Country: None (occurrence: None)
  Receive Date: 20070314
  Receipt Date: 20070305
  Transmission Date: 20070707
  Serious: Yes (Other)
  Sender: FDA-Public Use
  Company Number: JP-JNJFOC-20070206010

PATIENT
  Age: 23 Year
  Sex: Male

DRUGS (23)
  1. RISPERDAL [Suspect]
     Route: 048
  2. RISPERDAL [Suspect]
     Route: 048
  3. RISPERDAL [Suspect]
     Route: 048
  4. RISPERDAL [Suspect]
     Route: 048
  5. RISPERDAL [Suspect]
     Route: 048
  6. RISPERDAL [Suspect]
     Indication: DRUG USE FOR UNKNOWN INDICATION
     Route: 048
  7. VALERIN [Suspect]
     Route: 048
  8. VALERIN [Suspect]
     Route: 048
  9. VALERIN [Suspect]
     Indication: DRUG USE FOR UNKNOWN INDICATION
     Route: 048
  10. DORMICUM [Concomitant]
  11. THERAPTIQUE [Concomitant]
  12. SOLMALT [Concomitant]
  13. VITANEURIN [Concomitant]
  14. GASTER [Concomitant]
  15. ASCORBIC ACID [Concomitant]
  16. POTACOL-R [Concomitant]
  17. ROHYPNOL [Concomitant]
     Route: 048
  18. NITRAZEPAM [Concomitant]
     Route: 048
  19. LORAZEPAM [Concomitant]
     Route: 048
  20. LORAZEPAM [Concomitant]
     Route: 048
  21. LORAZEPAM [Concomitant]
     Route: 048
  22. ZYPREXA [Concomitant]
     Route: 048
  23. LOXONIN [Concomitant]
     Route: 048

REACTIONS (3)
  - DRY SKIN [None]
  - METAMYELOCYTE COUNT INCREASED [None]
  - MYELOCYTE COUNT INCREASED [None]
